FAERS Safety Report 25833602 (Version 1)
Quarter: 2025Q3

REPORT INFORMATION
  Report Type: Spontaneous
  Country: US (occurrence: US)
  Receive Date: 20250922
  Receipt Date: 20250922
  Transmission Date: 20251021
  Serious: No
  Sender: ELI LILLY AND COMPANY
  Company Number: US-ELI_LILLY_AND_COMPANY-US202509012786

PATIENT

DRUGS (1)
  1. EMGALITY [Suspect]
     Active Substance: GALCANEZUMAB-GNLM
     Indication: Headache
     Route: 065

REACTIONS (5)
  - Rhinorrhoea [Unknown]
  - Vision blurred [Unknown]
  - Facial pain [Unknown]
  - Headache [Unknown]
  - Ocular discomfort [Unknown]
